FAERS Safety Report 5196004-4 (Version None)
Quarter: 2006Q4

REPORT INFORMATION
  Report Type: 
  Country: None (occurrence: None)
  Receive Date: 20061227
  Receipt Date: 20061227
  Transmission Date: 20070319
  Serious: Yes (Life-Threatening, Hospitalization)
  Sender: FDA-Public Use
  Company Number: None

PATIENT
  Sex: Female
  Weight: 77.5651 kg

DRUGS (2)
  1. LEXAPRO [Suspect]
     Indication: MAJOR DEPRESSION
     Dosage: 40 MG 1 X PER DAY ORALLY
     Route: 048
     Dates: start: 20050301
  2. LORAZEPAM TABS [Concomitant]

REACTIONS (2)
  - OVERDOSE [None]
  - SUICIDE ATTEMPT [None]
